FAERS Safety Report 10578845 (Version 1)
Quarter: 2014Q4

REPORT INFORMATION
  Report Type: Spontaneous
  Country: US (occurrence: US)
  Receive Date: 20141112
  Receipt Date: 20141112
  Transmission Date: 20150529
  Serious: No
  Sender: FDA-Public Use
  Company Number: US-ENDO PHARMACEUTICALS INC.-MSER20140005

PATIENT
  Sex: Male

DRUGS (1)
  1. MORPHINE SULFATE ER [Suspect]
     Active Substance: MORPHINE SULFATE
     Indication: PAIN
     Dosage: UNK
     Route: 065

REACTIONS (1)
  - Drug ineffective [Recovered/Resolved]
